FAERS Safety Report 7103826-9 (Version None)
Quarter: 2010Q4

REPORT INFORMATION
  Report Type: 
  Country: None (occurrence: None)
  Receive Date: 20101115
  Receipt Date: 20101108
  Transmission Date: 20110411
  Serious: Yes (Other)
  Sender: FDA-Public Use
  Company Number: US-ABBOTT-10P-163-0684090-00

PATIENT
  Sex: Female
  Weight: 90.8 kg

DRUGS (16)
  1. HUMIRA [Suspect]
     Indication: RHEUMATOID ARTHRITIS
     Dates: start: 20090101, end: 20100901
  2. UNKNOWN ANTIBIOTICS [Suspect]
     Indication: STAPHYLOCOCCAL INFECTION
     Dates: start: 20100901, end: 20100901
  3. RAMIPRIL [Concomitant]
     Indication: HYPERTENSION
  4. NEXIUM [Concomitant]
     Indication: GASTROOESOPHAGEAL REFLUX DISEASE
  5. CLONAZEPAM [Concomitant]
     Indication: SLEEP DISORDER THERAPY
  6. TRAVATAN [Concomitant]
     Indication: GLAUCOMA
     Route: 047
  7. EFFEXOR [Concomitant]
     Indication: DEPRESSION
  8. EFFEXOR [Concomitant]
     Indication: FIBROMYALGIA
  9. MELOXICAM [Concomitant]
     Indication: ARTHRALGIA
  10. GABAPENTIN [Concomitant]
     Indication: ARTHRALGIA
  11. METHOTREXATE [Concomitant]
     Indication: RHEUMATOID ARTHRITIS
  12. VICODIN [Concomitant]
     Indication: ARTHRALGIA
  13. PROAIR HFA [Concomitant]
     Indication: ASTHMA
  14. ASPIRIN [Concomitant]
     Indication: CARDIOVASCULAR EVENT PROPHYLAXIS
  15. ACTONEL [Concomitant]
     Indication: OSTEOPOROSIS
  16. VITAMINS [Concomitant]
     Indication: VITAMIN SUPPLEMENTATION

REACTIONS (6)
  - ARTHRALGIA [None]
  - GAIT DISTURBANCE [None]
  - LIGAMENT RUPTURE [None]
  - MUSCULAR WEAKNESS [None]
  - PAIN [None]
  - STAPHYLOCOCCAL INFECTION [None]
